FAERS Safety Report 5089160-X (Version None)
Quarter: 2006Q3

REPORT INFORMATION
  Report Type: 
  Country: None (occurrence: None)
  Receive Date: 20060727
  Receipt Date: 20060526
  Transmission Date: 20061208
  Serious: Yes (Other)
  Sender: FDA-Public Use
  Company Number: 2006070363

PATIENT
  Age: 87 Year
  Sex: Male
  Weight: 54.4316 kg

DRUGS (2)
  1. LYRICA [Suspect]
     Indication: NEURALGIA
     Dosage: 50 MG (50 MG, 1 IN 1 D), UNKNOWN
     Dates: start: 20060525
  2. ENALAPRIL MALEATE [Concomitant]

REACTIONS (3)
  - CONFUSIONAL STATE [None]
  - DIZZINESS [None]
  - FEELING ABNORMAL [None]
